FAERS Safety Report 19562044 (Version 2)
Quarter: 2021Q3

REPORT INFORMATION
  Report Type: Other
  Country: DE (occurrence: DE)
  Receive Date: 20210714
  Receipt Date: 20210913
  Transmission Date: 20211014
  Serious: Yes (Hospitalization, Other)
  Sender: FDA-Public Use
  Company Number: DE-ROCHE-2264299

PATIENT
  Age: 56 Year
  Sex: Female

DRUGS (13)
  1. OCREVUS [Suspect]
     Active Substance: OCRELIZUMAB
     Indication: SECONDARY PROGRESSIVE MULTIPLE SCLEROSIS
     Dosage: AT DAY 0 AND 14?NEXT DOSE ON 02/APR/2018
     Route: 042
     Dates: start: 20180319, end: 20180319
  2. COMIRNATY [Suspect]
     Active Substance: TOZINAMERAN
     Dosage: SECOND VACCINATION; BIONTECH/PFIZER
     Route: 065
     Dates: start: 20210705
  3. OCREVUS [Suspect]
     Active Substance: OCRELIZUMAB
     Route: 042
     Dates: start: 20200420
  4. OCREVUS [Suspect]
     Active Substance: OCRELIZUMAB
     Route: 042
     Dates: start: 20210224
  5. GABAPENTIN. [Concomitant]
     Active Substance: GABAPENTIN
  6. OCREVUS [Suspect]
     Active Substance: OCRELIZUMAB
     Route: 042
     Dates: start: 20190404
  7. DEKRISTOL [Concomitant]
     Active Substance: CHOLECALCIFEROL
  8. PALEXIA [Concomitant]
     Active Substance: TAPENTADOL HYDROCHLORIDE
     Dosage: RETARD, 50 UNIT NOT REPORTED,  AS REQUIRED
  9. OCREVUS [Suspect]
     Active Substance: OCRELIZUMAB
     Route: 042
     Dates: start: 20181004
  10. COMIRNATY [Suspect]
     Active Substance: TOZINAMERAN
     Indication: COVID-19 PROPHYLAXIS
     Dosage: FIRST VACCINATION; BIONTECH/PFIZER
     Route: 065
     Dates: start: 20210524
  11. FAMPYRA [Concomitant]
     Active Substance: DALFAMPRIDINE
  12. PREGABALIN. [Concomitant]
     Active Substance: PREGABALIN
  13. PREGABALIN. [Concomitant]
     Active Substance: PREGABALIN

REACTIONS (19)
  - Off label use [Unknown]
  - Illness [Recovered/Resolved]
  - Poor venous access [Not Recovered/Not Resolved]
  - Hypertension [Recovered/Resolved]
  - Pain in extremity [Recovered/Resolved]
  - Listless [Recovered/Resolved]
  - Multiple sclerosis [Not Recovered/Not Resolved]
  - Blood pressure increased [Recovered/Resolved]
  - Gait disturbance [Recovered/Resolved]
  - COVID-19 [Recovered/Resolved]
  - Ear pain [Recovered/Resolved]
  - Fall [Unknown]
  - Pain in extremity [Recovered/Resolved]
  - Therapeutic product effect decreased [Unknown]
  - Influenza [Recovered/Resolved]
  - Oropharyngeal pain [Recovered/Resolved]
  - Muscular weakness [Recovered/Resolved]
  - Fatigue [Recovered/Resolved]
  - Nasal dryness [Recovered/Resolved]

NARRATIVE: CASE EVENT DATE: 20180319
